FAERS Safety Report 5669628 (Version 2)
Quarter: 2014Q1

REPORT INFORMATION
  Report Type: Spontaneous
  Country: IT (occurrence: IT)
  Receive Date: 20041015
  Receipt Date: 20140124
  Transmission Date: 20141002
  Serious: No
  Sender: FDA-Public Use
  Company Number: PHBS2003IT01545

PATIENT
  Age: 29 Year
  Sex: Female

DRUGS (5)
  1. CICLOSPORIN [Suspect]
     Indication: SYSTEMIC SCLEROSIS
     Dosage: 3 MG/KG, PER DAY
     Route: 065
  2. OMEPRAZOLE [Suspect]
     Dosage: 20 MG, PER DAY
     Route: 065
  3. FOLIC ACID [Suspect]
  4. IRON [Suspect]
  5. ILOPROST [Suspect]
     Route: 042

REACTIONS (2)
  - Premature delivery [Unknown]
  - Exposure during pregnancy [Unknown]
